FAERS Safety Report 6601987-9 (Version None)
Quarter: 2010Q1

REPORT INFORMATION
  Report Type: 
  Country: None (occurrence: None)
  Receive Date: 20100225
  Receipt Date: 20100216
  Transmission Date: 20100710
  Serious: Yes (Death, Other)
  Sender: FDA-Public Use
  Company Number: US-ELI_LILLY_AND_COMPANY-US201002005476

PATIENT
  Age: 51 Year
  Sex: Female

DRUGS (10)
  1. CYMBALTA [Suspect]
  2. DOXEPIN HCL [Concomitant]
  3. ETHANOL [Concomitant]
  4. CLONAZEPAM [Concomitant]
  5. CLONIDINE [Concomitant]
  6. DIPHENHYDRAMINE [Concomitant]
  7. SILDENAFIL CITRATE [Concomitant]
  8. SERTRALINE HCL [Concomitant]
  9. OXYBUTYNIN [Concomitant]
  10. ESCITALOPRAM [Concomitant]

REACTIONS (1)
  - DEATH [None]
